FAERS Safety Report 6006511-X (Version None)
Quarter: 2008Q4

REPORT INFORMATION
  Report Type: 
  Country: None (occurrence: None)
  Receive Date: 20081217
  Receipt Date: 20081210
  Transmission Date: 20090506
  Serious: Yes (Other)
  Sender: FDA-Public Use
  Company Number: US-AMGEN-US321446

PATIENT
  Sex: Male

DRUGS (3)
  1. NPLATE [Suspect]
     Indication: IDIOPATHIC THROMBOCYTOPENIC PURPURA
     Dates: start: 20081119
  2. PREDNISONE TAB [Concomitant]
     Dates: start: 20080320, end: 20081210
  3. ASPIRIN [Concomitant]
     Dates: end: 20081210

REACTIONS (1)
  - PLATELET COUNT INCREASED [None]
